FAERS Safety Report 19142443 (Version 2)
Quarter: 2021Q4

REPORT INFORMATION
  Report Type: Spontaneous
  Country: JP (occurrence: JP)
  Receive Date: 20210415
  Receipt Date: 20211222
  Transmission Date: 20220303
  Serious: Yes (Other)
  Sender: FDA-Public Use
  Company Number: JP-PFIZER INC-2021396864

PATIENT
  Age: 12 Year
  Sex: Male
  Weight: 48 kg

DRUGS (1)
  1. BENEFIX [Suspect]
     Active Substance: COAGULATION FACTOR IX RECOMBINANT HUMAN\ISOPROPYL ALCOHOL
     Indication: Haemophilia
     Dosage: UNK, CYCLIC
     Route: 042

REACTIONS (4)
  - Haemophilic arthropathy [Unknown]
  - Haemarthrosis [Unknown]
  - Inhibiting antibodies positive [Unknown]
  - Drug clearance increased [Unknown]

NARRATIVE: CASE EVENT DATE: 20200101
